FAERS Safety Report 24201708 (Version 1)
Quarter: 2024Q3

REPORT INFORMATION
  Report Type: Spontaneous
  Country: FR (occurrence: FR)
  Receive Date: 20240812
  Receipt Date: 20240812
  Transmission Date: 20241017
  Serious: Yes (Hospitalization, Disabling, Other)
  Sender: MYLAN
  Company Number: FR-AUROBINDO-AUR-APL-2024-018196

PATIENT
  Age: 39 Year
  Sex: Male

DRUGS (2)
  1. DOXYCYCLINE [Suspect]
     Active Substance: DOXYCYCLINE\DOXYCYCLINE HYCLATE
     Indication: Urethritis mycoplasmal
     Dosage: UNK
     Route: 048
     Dates: start: 202308, end: 202308
  2. DOXYCYCLINE [Suspect]
     Active Substance: DOXYCYCLINE\DOXYCYCLINE HYCLATE
     Indication: Mycoplasma infection
     Dosage: 200 MILLIGRAM, QD (DAILY)
     Route: 048

REACTIONS (3)
  - Penile exfoliation [Recovered/Resolved]
  - Penile oedema [Recovered/Resolved]
  - Product prescribing issue [Unknown]

NARRATIVE: CASE EVENT DATE: 20230801
